FAERS Safety Report 4908851-1 (Version None)
Quarter: 2006Q1

REPORT INFORMATION
  Report Type: 
  Country: None (occurrence: None)
  Receive Date: 20060210
  Receipt Date: 20051206
  Transmission Date: 20060701
  Serious: No
  Sender: FDA-Public Use
  Company Number: US-GLAXOSMITHKLINE-A0584844A

PATIENT
  Age: 52 Year
  Sex: Female

DRUGS (3)
  1. PAXIL CR [Suspect]
     Route: 048
  2. PAXIL [Suspect]
     Dosage: 20MG PER DAY
     Route: 048
     Dates: start: 20051001
  3. PREMARIN [Concomitant]

REACTIONS (1)
  - DRUG INEFFECTIVE [None]
